FAERS Safety Report 19740858 (Version 5)
Quarter: 2023Q2

REPORT INFORMATION
  Report Type: Report from Study
  Country: CO (occurrence: CO)
  Receive Date: 20210825
  Receipt Date: 20230628
  Transmission Date: 20230722
  Serious: Yes (Other)
  Sender: FDA-Public Use
  Company Number: CO-ABBVIE-21K-036-4051231-00

PATIENT
  Sex: Female
  Weight: 63 kg

DRUGS (2)
  1. HUMIRA [Suspect]
     Active Substance: ADALIMUMAB
     Indication: Ankylosing spondylitis
     Route: 058
     Dates: start: 20090430
  2. HUMIRA [Suspect]
     Active Substance: ADALIMUMAB

REACTIONS (14)
  - Glaucoma [Recovering/Resolving]
  - Eye disorder [Recovering/Resolving]
  - Intraocular pressure increased [Unknown]
  - Eye disorder [Unknown]
  - Blindness [Unknown]
  - Oxygen saturation abnormal [Recovering/Resolving]
  - Weight decreased [Recovered/Resolved]
  - Hernia [Unknown]
  - Hypertonic bladder [Not Recovered/Not Resolved]
  - Uveitis [Unknown]
  - Productive cough [Recovering/Resolving]
  - COVID-19 [Recovering/Resolving]
  - Discomfort [Recovering/Resolving]
  - Urinary tract infection [Recovered/Resolved]

NARRATIVE: CASE EVENT DATE: 20150101
